FAERS Safety Report 5245696-X (Version None)
Quarter: 2007Q1

REPORT INFORMATION
  Report Type: 
  Country: None (occurrence: None)
  Receive Date: 20070223
  Receipt Date: 20070213
  Transmission Date: 20070707
  Serious: Yes (Hospitalization)
  Sender: FDA-Public Use
  Company Number: FR-PFIZER INC-2007012408

PATIENT
  Age: 43 Year
  Sex: Female

DRUGS (3)
  1. LYRICA [Suspect]
     Dosage: DAILY DOSE:300MG
     Route: 048
     Dates: start: 20061122, end: 20061204
  2. TRAMADOL HCL [Suspect]
     Route: 048
     Dates: start: 20061122, end: 20061204
  3. LAROXYL [Suspect]
     Route: 048
     Dates: start: 20061122, end: 20061204

REACTIONS (3)
  - CONVULSION [None]
  - FALL [None]
  - JOINT DISLOCATION [None]
